FAERS Safety Report 13448171 (Version 2)
Quarter: 2017Q2

REPORT INFORMATION
  Report Type: Spontaneous
  Country: GR (occurrence: GR)
  Receive Date: 20170417
  Receipt Date: 20170530
  Transmission Date: 20170830
  Serious: Yes (Death)
  Sender: FDA-Public Use
  Company Number: GR-BAYER-2017-070518

PATIENT
  Age: 78 Year
  Sex: Male

DRUGS (3)
  1. CALCIORAL [Concomitant]
     Indication: HYPOCALCAEMIA
     Dosage: 1000 MG, BID
  2. NEXAVAR [Suspect]
     Active Substance: SORAFENIB
     Indication: THYROID CANCER
     Dosage: UNK
     Dates: start: 20170110, end: 20170120
  3. THYROXINE [Concomitant]
     Active Substance: LEVOTHYROXINE
     Indication: HYPOTHYROIDISM
     Dosage: 150 ?G, QD

REACTIONS (2)
  - Fatigue [None]
  - Pancreatic carcinoma [Fatal]

NARRATIVE: CASE EVENT DATE: 201701
